FAERS Safety Report 17338155 (Version 1)
Quarter: 2020Q1

REPORT INFORMATION
  Report Type: Spontaneous
  Country: GB (occurrence: GB)
  Receive Date: 20200129
  Receipt Date: 20200129
  Transmission Date: 20200409
  Serious: Yes (Hospitalization, Other)
  Sender: FDA-Public Use
  Company Number: GB-AUROBINDO-AUR-APL-2020-003977

PATIENT
  Age: 76 Year
  Sex: Female

DRUGS (6)
  1. DENOSUMAB [Suspect]
     Active Substance: DENOSUMAB
     Indication: OSTEOPOROSIS
     Dosage: 60 MILLIGRAM (6-MONTHLY INJECTIONS)
     Route: 058
     Dates: start: 201506
  2. LACTULOSE. [Concomitant]
     Active Substance: LACTULOSE
     Indication: PRODUCT USED FOR UNKNOWN INDICATION
     Dosage: UNK
     Route: 065
  3. AMILORIDE;HYDROCHLOROTHIAZIDE [Concomitant]
     Active Substance: AMILORIDE HYDROCHLORIDE\HYDROCHLOROTHIAZIDE
     Indication: PRODUCT USED FOR UNKNOWN INDICATION
     Dosage: UNK
     Route: 065
  4. DENOSUMAB [Suspect]
     Active Substance: DENOSUMAB
     Dosage: 60 MILLIGRAM (6-MONTHLY INJECTIONS)
     Route: 058
     Dates: start: 201512
  5. AMOXICILLIN+CLAVULANIC ACID [Suspect]
     Active Substance: AMOXICILLIN\CLAVULANIC ACID
     Indication: URINARY TRACT INFECTION
     Dosage: UNK
     Route: 065
     Dates: start: 201602
  6. RISEDRONATE SODIUM. [Concomitant]
     Active Substance: RISEDRONATE SODIUM
     Indication: OSTEOPOROSIS
     Dosage: UNK
     Route: 065

REACTIONS (16)
  - Eosinophilia [Recovered/Resolved]
  - Malaise [Recovered/Resolved]
  - Pericardial effusion [Recovered/Resolved]
  - Drug reaction with eosinophilia and systemic symptoms [Recovered/Resolved]
  - Myocarditis [Recovered/Resolved]
  - Abdominal pain [Recovered/Resolved]
  - Blood immunoglobulin G increased [Recovered/Resolved]
  - Nausea [Recovered/Resolved]
  - Pericarditis [Recovered/Resolved]
  - Acute kidney injury [Recovered/Resolved]
  - Chest pain [Recovered/Resolved]
  - Blood creatinine increased [Recovered/Resolved]
  - Myocardial necrosis marker increased [Recovered/Resolved]
  - Blood urea increased [Recovered/Resolved]
  - Blood immunoglobulin A increased [Recovered/Resolved]
  - Fatigue [Not Recovered/Not Resolved]

NARRATIVE: CASE EVENT DATE: 201605
